FAERS Safety Report 9038227 (Version 1)
Quarter: 2013Q1

REPORT INFORMATION
  Report Type: Spontaneous
  Country: US (occurrence: US)
  Receive Date: 20130129
  Receipt Date: 20130129
  Transmission Date: 20140127
  Serious: No
  Sender: FDA-Public Use
  Company Number: US-GLAXOSMITHKLINE-A0989002A

PATIENT
  Age: 53 Year
  Sex: Female

DRUGS (5)
  1. WELLBUTRIN [Suspect]
     Indication: DEPRESSION
     Route: 048
     Dates: end: 2012
  2. SAVELLA [Suspect]
     Indication: DEPRESSION
     Route: 048
     Dates: start: 201206
  3. CYMBALTA [Suspect]
     Indication: DEPRESSION
     Dates: end: 2012
  4. CLONAZEPAM [Concomitant]
  5. LAMICTAL [Concomitant]

REACTIONS (3)
  - Nausea [Not Recovered/Not Resolved]
  - Malaise [Unknown]
  - Headache [Unknown]
